FAERS Safety Report 8155829-3 (Version None)
Quarter: 2012Q1

REPORT INFORMATION
  Report Type: 
  Country: None (occurrence: None)
  Receive Date: 20120222
  Receipt Date: 20120215
  Transmission Date: 20120608
  Serious: Yes (Other)
  Sender: FDA-Public Use
  Company Number: US-JNJFOC-20120209042

PATIENT
  Sex: Female

DRUGS (1)
  1. NEOSPORIN [Suspect]
     Indication: THERMAL BURN
     Dosage: A SMALL AMOUNT
     Route: 061

REACTIONS (2)
  - APPLICATION SITE VESICLES [None]
  - DRUG HYPERSENSITIVITY [None]
